FAERS Safety Report 25311198 (Version 1)
Quarter: 2025Q2

REPORT INFORMATION
  Report Type: Spontaneous
  Country: US (occurrence: US)
  Receive Date: 20250514
  Receipt Date: 20250514
  Transmission Date: 20250717
  Serious: Yes (Other)
  Sender: ABBVIE
  Company Number: US-ABBVIE-6274982

PATIENT
  Age: 58 Year
  Sex: Female
  Weight: 82 kg

DRUGS (25)
  1. HUMIRA [Suspect]
     Active Substance: ADALIMUMAB
     Indication: Product used for unknown indication
     Route: 058
  2. REZDIFFRA [Suspect]
     Active Substance: RESMETIROM
     Indication: Liver function test abnormal
     Route: 048
     Dates: start: 20250110, end: 20250301
  3. ALBUTEROL [Concomitant]
     Active Substance: ALBUTEROL
     Indication: Asthma
  4. ALLEGRA [Concomitant]
     Active Substance: FEXOFENADINE HYDROCHLORIDE
     Indication: Multiple allergies
  5. ASPIRIN [Concomitant]
     Active Substance: ASPIRIN
     Indication: Hypertension
     Dosage: FORM STRENGTH: 82 MG
  6. CARVEDILOL [Concomitant]
     Active Substance: CARVEDILOL
     Indication: Hypertension
     Dosage: FORM STRENGTH: 6.25 MG, NEPHROLOGIST SAID TO TAKE HALF
  7. VITAMIN B12 [Concomitant]
     Active Substance: CYANOCOBALAMIN
     Indication: Product used for unknown indication
  8. VITAMIN D [Concomitant]
     Active Substance: VITAMIN D NOS
     Indication: Product used for unknown indication
  9. Clobetasol propion [Concomitant]
     Indication: Psoriasis
  10. DICLOFENAC SODIUM [Concomitant]
     Active Substance: DICLOFENAC SODIUM
     Indication: Psoriatic arthropathy
  11. DULOXETINE HYDROCHLORIDE [Concomitant]
     Active Substance: DULOXETINE HYDROCHLORIDE
     Indication: Psoriatic arthropathy
     Dosage: FORM STRENGTH: 30 MG, 1 PILL 1X DAY
  12. FARXIGA [Concomitant]
     Active Substance: DAPAGLIFLOZIN PROPANEDIOL
     Indication: Diabetes mellitus
     Dosage: FORM STRENGTH: 10 MG
  13. FISH OIL [Concomitant]
     Active Substance: FISH OIL
     Indication: Blood cholesterol
  14. FLUTICASONE PROPIONATE [Concomitant]
     Active Substance: FLUTICASONE PROPIONATE
     Indication: Multiple allergies
  15. LINZESS [Concomitant]
     Active Substance: LINACLOTIDE
     Indication: Constipation
  16. METFORMIN HYDROCHLORIDE [Concomitant]
     Active Substance: METFORMIN HYDROCHLORIDE
     Indication: Diabetes mellitus
     Dosage: FORM STRENGTH: 1000 MG
  17. METHOCARBAMOL [Concomitant]
     Active Substance: METHOCARBAMOL
     Indication: Psoriatic arthropathy
  18. DEVICE [Concomitant]
     Active Substance: DEVICE
     Indication: Psoriatic arthropathy
  19. MOUNJARO [Concomitant]
     Active Substance: TIRZEPATIDE
     Indication: Diabetes mellitus
     Dosage: 1 PEN 1X WEEK
  20. OLMESARTAN MEDOXOMIL [Concomitant]
     Active Substance: OLMESARTAN MEDOXOMIL
     Indication: Hypertension
  21. PREDNISONE [Concomitant]
     Active Substance: PREDNISONE
     Indication: Psoriatic arthropathy
     Dosage: FORM STRENGTH: 10 MG, AS NEEDED FOR FLARE
  22. Semglee [Concomitant]
     Indication: Diabetes mellitus
  23. TRAMADOL HCL [Concomitant]
     Active Substance: TRAMADOL HYDROCHLORIDE
     Indication: Psoriatic arthropathy
     Dosage: 50 MG UP TO 4X DAY (USUALLY 1X)
  24. TRIAMCINOLONE ACETONIDE [Concomitant]
     Active Substance: TRIAMCINOLONE ACETONIDE
     Indication: Psoriasis
  25. URSODIOL [Concomitant]
     Active Substance: URSODIOL
     Indication: Liver disorder

REACTIONS (22)
  - Liver disorder [Recovered/Resolved]
  - Gastrointestinal disorder [Unknown]
  - Nausea [Recovering/Resolving]
  - Dyspnoea [Unknown]
  - Malaise [Unknown]
  - Abdominal discomfort [Unknown]
  - Eructation [Unknown]
  - Alpha-1 antitrypsin deficiency [Not Recovered/Not Resolved]
  - Drug hypersensitivity [Unknown]
  - Blood iron decreased [Unknown]
  - Blood urea nitrogen/creatinine ratio increased [Unknown]
  - Bone erosion [Unknown]
  - Arthritis [Unknown]
  - Hepatic cirrhosis [Unknown]
  - Blood albumin increased [Not Recovered/Not Resolved]
  - Blood alkaline phosphatase increased [Recovered/Resolved]
  - Alanine aminotransferase increased [Not Recovered/Not Resolved]
  - Aspartate aminotransferase increased [Not Recovered/Not Resolved]
  - Blood creatinine increased [Not Recovered/Not Resolved]
  - Gamma-glutamyltransferase increased [Unknown]
  - White blood cell count increased [Unknown]
  - Haemoglobin decreased [Unknown]

NARRATIVE: CASE EVENT DATE: 20240801
